FAERS Safety Report 7670814-3 (Version None)
Quarter: 2011Q3

REPORT INFORMATION
  Report Type: 
  Country: None (occurrence: None)
  Receive Date: 20110803
  Receipt Date: 20110719
  Transmission Date: 20111222
  Serious: Yes (Life-Threatening, Hospitalization)
  Sender: FDA-Public Use
  Company Number: 2011MA009088

PATIENT
  Age: 19 Month
  Sex: Male

DRUGS (8)
  1. THYROTROPIN-RELEASING HORMONE (NO PREF. NAME) [Suspect]
     Indication: CONVULSION
  2. IMMUNE GLOBULIN INTRAVENOUS (HUMAN) [Suspect]
     Indication: CONVULSION
  3. CLOBAZAM [Concomitant]
  4. ADRENOCORTICOTROPIC HORMONE INJ [Suspect]
     Indication: CONVULSION
  5. VALPROIC ACID [Concomitant]
  6. VITAMIN B6 [Suspect]
     Indication: CONVULSION
  7. PHENOBARBITAL TAB [Suspect]
     Indication: CONVULSION
     Dosage: 30 MG/KG;QD;RTL
     Route: 054
  8. ZONISAMIDE [Concomitant]

REACTIONS (4)
  - OBSTRUCTIVE AIRWAYS DISORDER [None]
  - TOXICITY TO VARIOUS AGENTS [None]
  - SALIVARY HYPERSECRETION [None]
  - DRUG INEFFECTIVE [None]
